FAERS Safety Report 17324765 (Version 2)
Quarter: 2020Q1

REPORT INFORMATION
  Report Type: Spontaneous
  Country: US (occurrence: US)
  Receive Date: 20200127
  Receipt Date: 20200303
  Transmission Date: 20200409
  Serious: Yes (Other)
  Sender: FDA-Public Use
  Company Number: US-JNJFOC-20200126276

PATIENT
  Sex: Male

DRUGS (1)
  1. CONCERTA [Suspect]
     Active Substance: METHYLPHENIDATE HYDROCHLORIDE
     Indication: ATTENTION DEFICIT/HYPERACTIVITY DISORDER
     Route: 048

REACTIONS (7)
  - Incorrect dose administered [Unknown]
  - Drug ineffective [Unknown]
  - Suicidal ideation [Unknown]
  - Anger [Unknown]
  - Off label use [Unknown]
  - Treatment noncompliance [Unknown]
  - Eating disorder [Unknown]
